FAERS Safety Report 4602998-5 (Version None)
Quarter: 2005Q1

REPORT INFORMATION
  Report Type: 
  Country: None (occurrence: None)
  Receive Date: 20050309
  Receipt Date: 20041214
  Transmission Date: 20050727
  Serious: Yes (Other)
  Sender: FDA-Public Use
  Company Number: GB-ROCHE-389306

PATIENT
  Age: 55 Year
  Sex: Female
  Weight: 113 kg

DRUGS (1)
  1. XENICAL [Suspect]
     Indication: OBESITY
     Route: 048
     Dates: start: 20041209, end: 20041214

REACTIONS (1)
  - RECTAL HAEMORRHAGE [None]
